FAERS Safety Report 26148191 (Version 1)
Quarter: 2025Q4

REPORT INFORMATION
  Report Type: Spontaneous
  Country: US (occurrence: US)
  Receive Date: 20251212
  Receipt Date: 20251212
  Transmission Date: 20260118
  Serious: No
  Sender: ROCHE
  Company Number: US-ROCHE-10000430726

PATIENT
  Age: 49 Year
  Sex: Female
  Weight: 72.6 kg

DRUGS (24)
  1. CELLCEPT [Suspect]
     Active Substance: MYCOPHENOLATE MOFETIL
     Indication: Product used for unknown indication
     Dosage: UNKNOWN
  2. TREPROSTINIL [Suspect]
     Active Substance: TREPROSTINIL
     Indication: Interstitial lung disease
     Dosage: ORAL USE
     Route: 048
     Dates: start: 2025, end: 2025
  3. TREPROSTINIL [Suspect]
     Active Substance: TREPROSTINIL
     Dosage: ORAL USE
     Route: 048
  4. TREPROSTINIL [Suspect]
     Active Substance: TREPROSTINIL
     Dosage: ORAL USE
     Route: 048
  5. TREPROSTINIL [Suspect]
     Active Substance: TREPROSTINIL
     Dosage: ORAL USE
     Route: 048
  6. TREPROSTINIL [Suspect]
     Active Substance: TREPROSTINIL
     Dosage: CONCENTRATIONS OF 0.125 MG AND 1 MG
     Route: 048
     Dates: start: 2025, end: 2025
  7. TREPROSTINIL [Suspect]
     Active Substance: TREPROSTINIL
     Route: 048
     Dates: start: 2025, end: 2025
  8. TREPROSTINIL [Suspect]
     Active Substance: TREPROSTINIL
     Route: 048
     Dates: start: 2025, end: 2025
  9. TREPROSTINIL [Suspect]
     Active Substance: TREPROSTINIL
     Dosage: FOR 2 MONTHS
     Route: 048
     Dates: start: 2025
  10. VITAMIN D2 [Concomitant]
     Active Substance: ERGOCALCIFEROL
  11. Hair skin nails [Concomitant]
  12. OFEV [Concomitant]
     Active Substance: NINTEDANIB
  13. ADEMPAS [Concomitant]
     Active Substance: RIOCIGUAT
  14. COENZYME Q10 [Concomitant]
     Active Substance: DIETARY SUPPLEMENT\UBIDECARENONE
  15. NEXIUM [Concomitant]
     Active Substance: ESOMEPRAZOLE MAGNESIUM
  16. OPSUMIT [Concomitant]
     Active Substance: MACITENTAN
  17. UPTRAVI [Concomitant]
     Active Substance: SELEXIPAG
  18. OXYGEN [Concomitant]
     Active Substance: OXYGEN
  19. TUMS [Concomitant]
     Active Substance: CALCIUM CARBONATE
  20. CALCIUM [Concomitant]
     Active Substance: CALCIUM
  21. TORSEMIDE [Concomitant]
     Active Substance: TORSEMIDE
  22. FERROUS SULFATE [Concomitant]
     Active Substance: FERROUS SULFATE
  23. HYDRALAZINE HCL [Concomitant]
     Active Substance: HYDRALAZINE HYDROCHLORIDE
  24. IMODIUM [Concomitant]
     Active Substance: LOPERAMIDE HYDROCHLORIDE

REACTIONS (9)
  - Migraine [Recovering/Resolving]
  - Nausea [Recovering/Resolving]
  - Diarrhoea [Recovering/Resolving]
  - Pain in jaw [Recovering/Resolving]
  - Abdominal pain upper [Recovering/Resolving]
  - Vomiting [Recovering/Resolving]
  - Dizziness [Unknown]
  - Fatigue [Recovering/Resolving]
  - Stress [Unknown]

NARRATIVE: CASE EVENT DATE: 20250601
